FAERS Safety Report 16395290 (Version 1)
Quarter: 2019Q2

REPORT INFORMATION
  Report Type: Spontaneous
  Country: US (occurrence: US)
  Receive Date: 20190605
  Receipt Date: 20190605
  Transmission Date: 20190711
  Serious: No
  Sender: FDA-Public Use
  Company Number: US-009507513-1905USA012976

PATIENT
  Sex: Female

DRUGS (3)
  1. VARIVAX [Suspect]
     Active Substance: VARICELLA-ZOSTER VIRUS STRAIN OKA/MERCK LIVE ANTIGEN
     Indication: IMMUNISATION
     Route: 058
     Dates: start: 20190514
  2. PRILOSEC [Concomitant]
     Active Substance: OMEPRAZOLE MAGNESIUM
  3. STERILE DILUENT (WATER) [Suspect]
     Active Substance: WATER
     Indication: IMMUNISATION
     Dosage: LEFT ARM
     Route: 058
     Dates: start: 20190514, end: 20190514

REACTIONS (1)
  - Exposure during pregnancy [Unknown]
